FAERS Safety Report 16064749 (Version 1)
Quarter: 2019Q1

REPORT INFORMATION
  Report Type: Spontaneous
  Country: ES (occurrence: ES)
  Receive Date: 20190312
  Receipt Date: 20190312
  Transmission Date: 20190418
  Serious: Yes (Death)
  Sender: FDA-Public Use
  Company Number: ES-ALLERGAN-1910657US

PATIENT
  Sex: Female

DRUGS (4)
  1. EXELON [Concomitant]
     Active Substance: RIVASTIGMINE TARTRATE
     Indication: DEMENTIA ALZHEIMER^S TYPE
     Dosage: 9.5 MG, QD
     Route: 062
     Dates: start: 201701, end: 20190203
  2. MEMANTINE HCL - BP [Suspect]
     Active Substance: MEMANTINE
     Indication: DEMENTIA ALZHEIMER^S TYPE
     Dosage: 20 MG, QD
     Route: 048
     Dates: start: 20181101, end: 20190201
  3. DEPRAX [Concomitant]
     Indication: SLEEP DISORDER
     Dosage: 150 MG, QHS AT NIGHT
     Route: 048
     Dates: end: 20190130
  4. FUROSEMIDA BEXAL [Concomitant]
     Indication: FLUID RETENTION
     Dosage: 40 MG, QAM AT BREAKFAST

REACTIONS (2)
  - Apathy [Fatal]
  - Portosplenomesenteric venous thrombosis [Fatal]

NARRATIVE: CASE EVENT DATE: 2019
